FAERS Safety Report 5028405-9 (Version None)
Quarter: 2006Q2

REPORT INFORMATION
  Report Type: 
  Country: None (occurrence: None)
  Receive Date: 20060617
  Receipt Date: 20060608
  Transmission Date: 20061013
  Serious: Yes (Other)
  Sender: FDA-Public Use
  Company Number: US-JNJFOC-20060602094

PATIENT
  Age: 29 Year
  Sex: Female

DRUGS (2)
  1. TOPAMAX [Suspect]
     Indication: HEADACHE
     Dosage: FOR 2 MONTHS
  2. SYMBYAX [Concomitant]
     Indication: BIPOLAR I DISORDER

REACTIONS (1)
  - DRUG WITHDRAWAL CONVULSIONS [None]
